FAERS Safety Report 13338526 (Version 3)
Quarter: 2017Q4

REPORT INFORMATION
  Report Type: Spontaneous
  Country: US (occurrence: US)
  Receive Date: 20170315
  Receipt Date: 20171109
  Transmission Date: 20180320
  Serious: Yes (Other)
  Sender: FDA-Public Use
  Company Number: PHEH2017US007302

PATIENT
  Age: 52 Year
  Sex: Female

DRUGS (2)
  1. VOTRIENT [Suspect]
     Active Substance: PAZOPANIB HYDROCHLORIDE
     Dosage: 400 MG, QD
     Route: 048
     Dates: start: 20161107
  2. VOTRIENT [Suspect]
     Active Substance: PAZOPANIB HYDROCHLORIDE
     Indication: SOFT TISSUE SARCOMA
     Dosage: 400 MG, QD
     Route: 048
     Dates: start: 20160315

REACTIONS (8)
  - Blood thyroid stimulating hormone increased [Unknown]
  - Burning sensation [Unknown]
  - Nausea [Unknown]
  - Fatigue [Unknown]
  - Hyperkeratosis [Not Recovered/Not Resolved]
  - Abdominal discomfort [Unknown]
  - Thyroid hormones decreased [Unknown]
  - Diarrhoea [Unknown]

NARRATIVE: CASE EVENT DATE: 20161108
